FAERS Safety Report 4994296-5 (Version None)
Quarter: 2006Q1

REPORT INFORMATION
  Report Type: 
  Country: None (occurrence: None)
  Receive Date: 20060314
  Receipt Date: 20050527
  Transmission Date: 20060701
  Serious: Yes (Other)
  Sender: FDA-Public Use
  Company Number: 200512248BCC

PATIENT
  Sex: Male
  Weight: 86.1834 kg

DRUGS (3)
  1. ALEVE (CAPLET) [Suspect]
     Indication: TOOTHACHE
     Dosage: 220 MG, ONCE, ORAL;440 MG, ORAL
     Route: 048
     Dates: start: 20050525
  2. ALEVE (CAPLET) [Suspect]
     Indication: TOOTHACHE
     Dosage: 220 MG, ONCE, ORAL;440 MG, ORAL
     Route: 048
     Dates: start: 20050526
  3. 2 BEERS [Concomitant]

REACTIONS (1)
  - RECTAL HAEMORRHAGE [None]
